FAERS Safety Report 16206170 (Version 1)
Quarter: 2019Q2

REPORT INFORMATION
  Report Type: Other
  Country: FR (occurrence: FR)
  Receive Date: 20190417
  Receipt Date: 20190417
  Transmission Date: 20190711
  Serious: Yes (Death)
  Sender: FDA-Public Use
  Company Number: FR-EMCURE PHARMACEUTICALS LTD-2019-EPL-0184

PATIENT
  Age: 51 Year
  Sex: Female

DRUGS (13)
  1. METHOTREXATE. [Suspect]
     Active Substance: METHOTREXATE
     Indication: B-CELL LYMPHOMA
     Dosage: 4800 MILLIGRAM, 1 CYCLE
     Route: 042
     Dates: start: 20180611, end: 20181016
  2. CYCLOPHOSPHAMIDE. [Suspect]
     Active Substance: CYCLOPHOSPHAMIDE
     Indication: B-CELL LYMPHOMA
     Dosage: 4100 MILLIGRAM, 1 CYCLE
     Route: 042
     Dates: start: 20181217, end: 20181217
  3. PROCARBAZINE [Concomitant]
     Active Substance: PROCARBAZINE
     Dosage: UNK
  4. TRUXIMA [Suspect]
     Active Substance: RITUXIMAB-ABBS
     Indication: B-CELL LYMPHOMA
     Dosage: 600 MILLIGRAM, 1 CYCLE
     Route: 042
     Dates: start: 20180611, end: 20181101
  5. ETOPOSIDE. [Suspect]
     Active Substance: ETOPOSIDE
     Indication: B-CELL LYMPHOMA
     Dosage: 160 MILLIGRAM, 1 CYCLE
     Route: 042
     Dates: start: 20180612, end: 20181003
  6. TEPADINA [Suspect]
     Active Substance: THIOTEPA
     Indication: B-CELL LYMPHOMA
     Dosage: 440 MILLIGRAM, 1 CYCLE
     Route: 042
     Dates: start: 20181211, end: 20181213
  7. BUSILVEX [Suspect]
     Active Substance: BUSULFAN
     Indication: B-CELL LYMPHOMA
     Dosage: 218 MILLIGRAM, 1 CYCLE
     Route: 042
     Dates: start: 20181214, end: 20181215
  8. BICNU [Suspect]
     Active Substance: CARMUSTINE
     Indication: B-CELL LYMPHOMA
     Dosage: 160 MILLIGRAM, 1 CYCLE
     Route: 042
     Dates: start: 20180613, end: 20181004
  9. CYTARABINE. [Suspect]
     Active Substance: CYTARABINE
     Indication: B-CELL LYMPHOMA
     Dosage: 4800 MILLIGRAM, 1 CYCLE
     Route: 042
     Dates: start: 20181031, end: 20181101
  10. PROPRANOLOL [Concomitant]
     Active Substance: PROPRANOLOL HYDROCHLORIDE
     Indication: TACHYCARDIA
     Dosage: 60 MILLIGRAM
     Route: 048
     Dates: start: 2016
  11. PROPRANOLOL [Concomitant]
     Active Substance: PROPRANOLOL HYDROCHLORIDE
     Dosage: 40 MILLIGRAM, 1 IN THE MORNING AND 1/2 IN THE EVENING
  12. BUSILVEX [Suspect]
     Active Substance: BUSULFAN
     Dosage: 109 MILLIGRAM, 1 CYCLE
     Route: 042
     Dates: start: 20181216, end: 20181216
  13. ESOMEPRAZOLE. [Concomitant]
     Active Substance: ESOMEPRAZOLE MAGNESIUM
     Indication: PRODUCT USED FOR UNKNOWN INDICATION
     Dosage: 20 MILLIGRAM
     Route: 048

REACTIONS (2)
  - Acute respiratory distress syndrome [Fatal]
  - Pulmonary fibrosis [Fatal]

NARRATIVE: CASE EVENT DATE: 20190215
